FAERS Safety Report 24407317 (Version 1)
Quarter: 2024Q4

REPORT INFORMATION
  Report Type: Spontaneous
  Country: US (occurrence: US)
  Receive Date: 20241007
  Receipt Date: 20241007
  Transmission Date: 20250114
  Serious: Yes (Life-Threatening, Hospitalization, Disabling, Other)
  Sender: DR REDDYS
  Company Number: US-MLMSERVICE-20240923-PI202224-00175-1

PATIENT
  Age: 67 Year
  Sex: Female

DRUGS (2)
  1. HEPARIN [Suspect]
     Active Substance: HEPARIN SODIUM
     Indication: Acute myocardial infarction
  2. NITROGLYCERIN [Concomitant]
     Active Substance: NITROGLYCERIN
     Indication: Product used for unknown indication

REACTIONS (3)
  - Heparin-induced thrombocytopenia [Unknown]
  - Coronary vascular graft occlusion [Unknown]
  - Deep vein thrombosis [Unknown]
